FAERS Safety Report 10948140 (Version 1)
Quarter: 2015Q1

REPORT INFORMATION
  Report Type: Spontaneous
  Country: US (occurrence: None)
  Receive Date: 20150323
  Receipt Date: 20150323
  Transmission Date: 20150721
  Serious: Yes (Death)
  Sender: FDA-Public Use
  Company Number: None

PATIENT
  Age: 81 Year
  Sex: Male
  Weight: 86.18 kg

DRUGS (10)
  1. PROVENTIL HFA [Concomitant]
     Active Substance: ALBUTEROL SULFATE
  2. BPAP [Concomitant]
  3. CRESTOR [Concomitant]
     Active Substance: ROSUVASTATIN CALCIUM
  4. ASA [Concomitant]
     Active Substance: ASPIRIN
  5. FENOTIBRATE [Concomitant]
  6. NITRO [Concomitant]
     Active Substance: NITROGLYCERIN
  7. MULTIVITS [Concomitant]
  8. XARELTO [Suspect]
     Active Substance: RIVAROXABAN
     Indication: ATRIAL FIBRILLATION
     Dates: start: 20140820, end: 20140925
  9. TRADJENTA [Concomitant]
     Active Substance: LINAGLIPTIN
  10. GLIBURAIDE [Concomitant]

REACTIONS (7)
  - Fatigue [None]
  - Cardiac disorder [None]
  - Dyspnoea [None]
  - Asthenia [None]
  - Coronary arterial stent insertion [None]
  - Haemorrhage [None]
  - Blood test abnormal [None]

NARRATIVE: CASE EVENT DATE: 20150122
